FAERS Safety Report 7047780-7 (Version None)
Quarter: 2010Q4

REPORT INFORMATION
  Report Type: 
  Country: None (occurrence: None)
  Receive Date: 20101015
  Receipt Date: 20101011
  Transmission Date: 20110411
  Serious: Yes (Life-Threatening, Other)
  Sender: FDA-Public Use
  Company Number: US-PFIZER INC-2010129180

PATIENT
  Sex: Female
  Weight: 91 kg

DRUGS (5)
  1. ARTHROTEC [Suspect]
     Indication: ARTHRALGIA
     Dosage: 50/200 MG/MCG DAILY
     Route: 048
  2. ARTHROTEC [Interacting]
     Indication: BACK PAIN
  3. COUMADIN [Interacting]
     Dosage: UNK
  4. EXTRA STRENGTH TYLENOL [Concomitant]
     Indication: PAIN
     Dosage: UNK
  5. LIPITOR [Concomitant]
     Indication: BLOOD CHOLESTEROL INCREASED
     Dosage: 20 MG, 1X/DAY
     Route: 048

REACTIONS (2)
  - DRUG INTERACTION [None]
  - PULMONARY EMBOLISM [None]
